FAERS Safety Report 7570893-8 (Version None)
Quarter: 2011Q2

REPORT INFORMATION
  Report Type: 
  Country: None (occurrence: None)
  Receive Date: 20110620
  Receipt Date: 20110606
  Transmission Date: 20111010
  Serious: Yes (Other)
  Sender: FDA-Public Use
  Company Number: 2011GW000344

PATIENT
  Age: 76 Year
  Sex: Male
  Weight: 86.1834 kg

DRUGS (5)
  1. PRAVASTATIN [Concomitant]
  2. PLAVIX [Concomitant]
  3. ASPIRIN [Concomitant]
  4. POTASSIUM [Concomitant]
  5. ZYCLARA [Suspect]
     Indication: ACTINIC KERATOSIS
     Dosage: 3.75 PCT, TOP
     Route: 061

REACTIONS (4)
  - CEREBRAL DISORDER [None]
  - COGNITIVE DISORDER [None]
  - APPLICATION SITE SCAB [None]
  - APPLICATION SITE DISCHARGE [None]
